FAERS Safety Report 9208948 (Version 1)
Quarter: 2013Q2

REPORT INFORMATION
  Report Type: Spontaneous
  Country: JP (occurrence: JP)
  Receive Date: 20130404
  Receipt Date: 20130404
  Transmission Date: 20140414
  Serious: Yes (Hospitalization, Other)
  Sender: FDA-Public Use
  Company Number: PHHY2013JP017588

PATIENT
  Sex: Male

DRUGS (2)
  1. DIOVAN [Suspect]
     Dosage: 40 MG, DAILY
     Route: 048
  2. MICARDIS [Concomitant]
     Dosage: 40 MG, UNK
     Route: 048

REACTIONS (2)
  - Osteoarthritis [Unknown]
  - Renal impairment [Unknown]
